FAERS Safety Report 10084472 (Version 1)
Quarter: 2014Q2

REPORT INFORMATION
  Report Type: Spontaneous
  Country: US (occurrence: US)
  Receive Date: 20140417
  Receipt Date: 20140417
  Transmission Date: 20141212
  Serious: No
  Sender: FDA-Public Use
  Company Number: US-009507513-1404USA010056

PATIENT
  Sex: Male

DRUGS (1)
  1. PROPECIA [Suspect]
     Indication: ALOPECIA
     Dosage: UNK

REACTIONS (7)
  - Balance disorder [Unknown]
  - Dizziness [Unknown]
  - Dysarthria [Unknown]
  - Night sweats [Unknown]
  - Speech disorder [Unknown]
  - Fatigue [Unknown]
  - Headache [Unknown]
